FAERS Safety Report 9171414 (Version 2)
Quarter: 2013Q1

REPORT INFORMATION
  Report Type: Spontaneous
  Country: US (occurrence: None)
  Receive Date: 20130307
  Receipt Date: 20130318
  Transmission Date: 20140127
  Serious: Yes (Hospitalization)
  Sender: FDA-Public Use
  Company Number: 2013034884

PATIENT
  Sex: Male
  Weight: 42.18 kg

DRUGS (14)
  1. PRIVIGEN (IMMUNE GLOBULIN INTRAVENOUS (HUMAN) 10% LIQUID) [Suspect]
     Indication: SELECTIVE IGA IMMUNODEFICIENCY
     Dosage: (10 G  1X/2WEEKS INTRAVENOUS (NOT OTHERWISE SPECIFIED) ),
     Route: 042
  2. PRIVIGEN (IMMUNE GLOBULIN INTRAVENOUS (HUMAN) 10% LIQUID) [Suspect]
     Indication: HYPOGLOBULINAEMIA
     Dosage: (10 G  1X/2WEEKS INTRAVENOUS (NOT OTHERWISE SPECIFIED) ),
     Route: 042
  3. AZITHROMYCIN (AZITHROMYCIN) [Concomitant]
  4. TRIHEXPHENIDYL (TRIHEXYPHENIDYL) [Concomitant]
  5. FLOVENT (FLUTICASONE PROPIONATE) [Concomitant]
  6. SODIUM CHLORIDE (SODIUM CHLORIDE) [Concomitant]
  7. ATROVENT (IPRATROPIUM BROMIDE) [Concomitant]
  8. VITAMIN D (ERGOCALCIFEROL) [Concomitant]
  9. PREVACID (LANSOPRAZOLE) [Concomitant]
  10. ACETAMINOPHEN (PARACETAMOL) [Concomitant]
  11. ATROVENT (IPRATROPIUM BROMIDE) [Concomitant]
  12. DIPHENHYDRAMINE (DIPHENYHDRAMINE) [Concomitant]
  13. NORMAL SALINE (SODIUM CHLORIDE) [Concomitant]
  14. EPI-PEN (EPINEPHRINE HYDROCHLORIDE) [Concomitant]

REACTIONS (1)
  - Lung disorder [None]
